FAERS Safety Report 24545889 (Version 2)
Quarter: 2024Q4

REPORT INFORMATION
  Report Type: Report from Study
  Country: CA (occurrence: CA)
  Receive Date: 20241024
  Receipt Date: 20241126
  Transmission Date: 20250115
  Serious: Yes (Hospitalization, Other)
  Sender: PUMA
  Company Number: CA-PUMA BIOTECHNOLOGY, INC.-2024-PUM-CA001144

PATIENT

DRUGS (9)
  1. NERLYNX [Suspect]
     Active Substance: NERATINIB
     Indication: HER2 positive breast cancer
     Dosage: 120 MILLIGRAM, QD
     Route: 048
     Dates: start: 20240115, end: 20240121
  2. NERLYNX [Suspect]
     Active Substance: NERATINIB
     Dosage: 160 MILLIGRAM, QD
     Route: 048
     Dates: start: 20240122, end: 20240128
  3. NERLYNX [Suspect]
     Active Substance: NERATINIB
     Dosage: 240 MILLIGRAM, QD
     Route: 048
     Dates: start: 20240129, end: 20241010
  4. NERLYNX [Suspect]
     Active Substance: NERATINIB
     Dosage: 240 MILLIGRAM, QD
     Route: 048
     Dates: start: 20241012
  5. METFORMIN [Concomitant]
     Active Substance: METFORMIN HYDROCHLORIDE
     Indication: Product used for unknown indication
     Dosage: 1000 MG, BID
  6. SITAGLIPTIN [Concomitant]
     Active Substance: SITAGLIPTIN
     Indication: Product used for unknown indication
     Dosage: 50 MG, DAILY
  7. ROSUVASTATIN [Concomitant]
     Active Substance: ROSUVASTATIN
     Indication: Arthritis
     Dosage: 20 MG
  8. POTASSIUM [Concomitant]
     Active Substance: POTASSIUM
     Indication: Product used for unknown indication
     Dosage: UNK
  9. LOPERAMIDE [Concomitant]
     Active Substance: LOPERAMIDE
     Indication: Prophylaxis against diarrhoea
     Dosage: UNK

REACTIONS (12)
  - Haematochezia [Unknown]
  - Rectal haemorrhage [Unknown]
  - Ear haemorrhage [Unknown]
  - Haematoma [Unknown]
  - Nail bed disorder [Unknown]
  - Nail bed inflammation [Unknown]
  - Sensitive skin [Unknown]
  - Skin erosion [Unknown]
  - Diarrhoea [Unknown]
  - Toxicity to various agents [Unknown]
  - Product dose omission issue [Unknown]
  - Product prescribing error [Unknown]

NARRATIVE: CASE EVENT DATE: 20241014
